FAERS Safety Report 6832084-5 (Version None)
Quarter: 2010Q3

REPORT INFORMATION
  Report Type: 
  Country: None (occurrence: None)
  Receive Date: 20100712
  Receipt Date: 20100707
  Transmission Date: 20110219
  Serious: Yes (Death)
  Sender: FDA-Public Use
  Company Number: GB-BRISTOL-MYERS SQUIBB COMPANY-15182900

PATIENT
  Age: 89 Year
  Sex: Male
  Weight: 138 kg

DRUGS (6)
  1. ARIPIPRAZOLE [Suspect]
     Indication: BIPOLAR DISORDER
     Route: 048
     Dates: start: 20100422, end: 20100423
  2. ARIPIPRAZOLE [Suspect]
     Indication: DEPRESSION
     Route: 048
     Dates: start: 20100422, end: 20100423
  3. ARIPIPRAZOLE [Suspect]
     Indication: PSYCHOTIC BEHAVIOUR
     Route: 048
     Dates: start: 20100422, end: 20100423
  4. HALOPERIDOL [Suspect]
     Indication: AGITATION
     Route: 048
  5. LORAZEPAM [Suspect]
     Indication: AGITATION
     Route: 048
     Dates: start: 20100422, end: 20100423
  6. DIAZEPAM [Concomitant]

REACTIONS (1)
  - DEATH [None]
